FAERS Safety Report 8614768-1 (Version None)
Quarter: 2012Q3

REPORT INFORMATION
  Report Type: 
  Country: None (occurrence: None)
  Receive Date: 20120823
  Receipt Date: 20120821
  Transmission Date: 20120928
  Serious: Yes (Other)
  Sender: FDA-Public Use
  Company Number: JP-PFIZER INC-2012197538

PATIENT
  Age: 48 Year
  Sex: Male

DRUGS (6)
  1. CHANTIX [Suspect]
     Dosage: 1 MG/DAY
     Route: 048
     Dates: start: 20110726
  2. FAMOTIDINE [Concomitant]
     Dosage: UNK
     Route: 048
  3. CHANTIX [Suspect]
     Dosage: 2 MG/DAY
     Route: 048
  4. GASMOTIN [Concomitant]
     Dosage: UNK
     Route: 048
  5. LANSOPRAZOLE [Concomitant]
     Dosage: UNK
     Route: 048
  6. MOTILIUM [Concomitant]
     Dosage: UNK
     Route: 048

REACTIONS (3)
  - COORDINATION ABNORMAL [None]
  - CEREBRAL INFARCTION [None]
  - DIZZINESS [None]
